FAERS Safety Report 12670728 (Version 1)
Quarter: 2016Q3

REPORT INFORMATION
  Report Type: Spontaneous
  Country: US (occurrence: US)
  Receive Date: 20160822
  Receipt Date: 20160822
  Transmission Date: 20161109
  Serious: No
  Sender: FDA-Public Use
  Company Number: US-JAZZ-2016-US-005926

PATIENT
  Sex: Male

DRUGS (31)
  1. XYREM [Suspect]
     Active Substance: SODIUM OXYBATE
     Dosage: DOSE ADJUSTMENTS
     Route: 048
  2. TIZANIDINE HCL [Suspect]
     Active Substance: TIZANIDINE HYDROCHLORIDE
     Indication: PRODUCT USED FOR UNKNOWN INDICATION
     Dosage: UNK
  3. EMBELINE [Concomitant]
     Active Substance: CLOBETASOL PROPIONATE
  4. PARAFON FORTE [Concomitant]
     Active Substance: CHLORZOXAZONE
  5. RANITIDINE. [Concomitant]
     Active Substance: RANITIDINE
  6. ZITHROMAX [Concomitant]
     Active Substance: AZITHROMYCIN DIHYDRATE
  7. XYREM [Suspect]
     Active Substance: SODIUM OXYBATE
     Indication: NARCOLEPSY
     Dosage: 2.25 G, BID
     Route: 048
     Dates: start: 200602, end: 200603
  8. ADVAIR HFA [Concomitant]
     Active Substance: FLUTICASONE PROPIONATE\SALMETEROL XINAFOATE
  9. SULFASALAZINE. [Concomitant]
     Active Substance: SULFASALAZINE
  10. CLARITIN [Concomitant]
     Active Substance: LORATADINE
  11. XYREM [Suspect]
     Active Substance: SODIUM OXYBATE
     Dosage: 4.5 G, BID
     Route: 048
     Dates: start: 201201
  12. CELEBREX [Concomitant]
     Active Substance: CELECOXIB
  13. ZYRTEC [Concomitant]
     Active Substance: CETIRIZINE HYDROCHLORIDE
  14. FISH OIL CONCENTRATE [Concomitant]
  15. NUVIGIL [Concomitant]
     Active Substance: ARMODAFINIL
  16. ADVAIR HFA [Concomitant]
     Active Substance: FLUTICASONE PROPIONATE\SALMETEROL XINAFOATE
  17. SKELAXIN [Concomitant]
     Active Substance: METAXALONE
  18. BACLOFEN. [Suspect]
     Active Substance: BACLOFEN
     Indication: PRODUCT USED FOR UNKNOWN INDICATION
     Dosage: UNKNOWN DOSE
  19. CALCIUM + VITAMIN D [Concomitant]
     Active Substance: CALCIUM\VITAMIN D
  20. MULTIVITAMINS [Concomitant]
     Active Substance: VITAMINS
  21. GABAPENTIN. [Concomitant]
     Active Substance: GABAPENTIN
  22. FLONASE [Concomitant]
     Active Substance: FLUTICASONE PROPIONATE
  23. TRAMADOL HCL [Concomitant]
     Active Substance: TRAMADOL HYDROCHLORIDE
  24. ACETAMINOPHEN ER [Concomitant]
     Active Substance: ACETAMINOPHEN
  25. OMEPRAZOLE DR [Concomitant]
     Active Substance: OMEPRAZOLE
  26. ENTEX T [Concomitant]
     Active Substance: GUAIFENESIN\PSEUDOEPHEDRINE HYDROCHLORIDE
  27. FLOMAX [Concomitant]
     Active Substance: TAMSULOSIN HYDROCHLORIDE
  28. METHOTREXATE. [Concomitant]
     Active Substance: METHOTREXATE
  29. RESTASIS [Concomitant]
     Active Substance: CYCLOSPORINE
  30. GLUCOSAMINE + CHONDROITIN [Concomitant]
  31. DARVOCET [Concomitant]
     Active Substance: ACETAMINOPHEN\PROPOXYPHENE HYDROCHLORIDE

REACTIONS (1)
  - Somnolence [Unknown]
